FAERS Safety Report 13836456 (Version 2)
Quarter: 2017Q4

REPORT INFORMATION
  Report Type: Report from Study
  Country: US (occurrence: US)
  Receive Date: 20170804
  Receipt Date: 20171013
  Transmission Date: 20180320
  Serious: Yes (Other)
  Sender: FDA-Public Use
  Company Number: US-ACTELION-A-US2016-142938

PATIENT
  Age: 69 Year
  Sex: Female
  Weight: 79.37 kg

DRUGS (5)
  1. UPTRAVI [Suspect]
     Active Substance: SELEXIPAG
     Dosage: 800 MCG, BID
     Route: 048
  2. UPTRAVI [Suspect]
     Active Substance: SELEXIPAG
     Indication: PULMONARY HYPERTENSION
     Dosage: 600 MCG, BID
     Route: 048
     Dates: start: 20160627
  3. UPTRAVI [Suspect]
     Active Substance: SELEXIPAG
     Dosage: 400 MCG, BID
     Route: 048
  4. XARELTO [Concomitant]
     Active Substance: RIVAROXABAN
  5. ADCIRCA [Concomitant]
     Active Substance: TADALAFIL

REACTIONS (15)
  - Haemoglobin decreased [Unknown]
  - Blood pressure diastolic decreased [Unknown]
  - Palpitations [Unknown]
  - Nausea [Unknown]
  - Anaemia [Unknown]
  - Hypotension [Unknown]
  - Immune thrombocytopenic purpura [Unknown]
  - Mineral supplementation [Unknown]
  - Dizziness [Unknown]
  - Abdominal discomfort [Unknown]
  - Dizziness postural [Unknown]
  - Rash [Unknown]
  - Irritable bowel syndrome [Unknown]
  - Dyspnoea [Unknown]
  - Diarrhoea [Unknown]
